FAERS Safety Report 5058515-1 (Version None)
Quarter: 2006Q2

REPORT INFORMATION
  Report Type: 
  Country: None (occurrence: None)
  Receive Date: 20060627
  Receipt Date: 20050707
  Transmission Date: 20061013
  Serious: Yes (Hospitalization)
  Sender: FDA-Public Use
  Company Number: 410225

PATIENT
  Age: 55 Year
  Sex: Female
  Weight: 99.8 kg

DRUGS (6)
  1. XELODA [Suspect]
     Indication: HEPATIC NEOPLASM MALIGNANT
     Dosage: 1.5 GRAM 2 PER DAY ORAL
     Route: 048
     Dates: start: 20050515, end: 20050623
  2. CONCOMITANT UNSPECIFIED DRUG (GENERIC UNKNOWN) [Concomitant]
  3. PROZAC [Concomitant]
  4. SYNTHROID [Concomitant]
  5. ZETIA [Concomitant]
  6. ZOMETA [Concomitant]

REACTIONS (8)
  - ASTHENIA [None]
  - DEHYDRATION [None]
  - DIARRHOEA [None]
  - FATIGUE [None]
  - HAEMORRHAGE [None]
  - PALMAR-PLANTAR ERYTHRODYSAESTHESIA SYNDROME [None]
  - STOMATITIS [None]
  - VOMITING [None]
